FAERS Safety Report 26173211 (Version 1)
Quarter: 2025Q4

REPORT INFORMATION
  Report Type: Spontaneous
  Country: CA (occurrence: CA)
  Receive Date: 20251218
  Receipt Date: 20251218
  Transmission Date: 20260117
  Serious: Yes (Death, Life-Threatening, Hospitalization, Disabling, Congenital Anomaly, Other)
  Sender: SANDOZ
  Company Number: CA-HALEON-2278854

PATIENT
  Age: 43 Year
  Sex: Female

DRUGS (300)
  1. ACETAMINOPHEN [Suspect]
     Active Substance: ACETAMINOPHEN
     Indication: Rheumatoid arthritis
     Dosage: UNK, ROUTE OF ADMINISTRATION: UNKNOWN
     Route: 065
  2. PREDNISONE [Suspect]
     Active Substance: PREDNISONE
     Indication: Product used for unknown indication
     Dosage: UNK, ROUTE OF ADMINISTRATION: UNKNOWN
     Route: 065
  3. ARAVA [Suspect]
     Active Substance: LEFLUNOMIDE
     Dosage: 1 DF
     Route: 048
  4. ARAVA [Suspect]
     Active Substance: LEFLUNOMIDE
     Dosage: 10 MG, ROUTE OF ADMINISTRATION: UNKNOWN
     Route: 065
  5. ARAVA [Suspect]
     Active Substance: LEFLUNOMIDE
     Dosage: 10 MG, ROUTE OF ADMINISTRATION: UNKNOWN
     Route: 065
  6. ARAVA [Suspect]
     Active Substance: LEFLUNOMIDE
     Indication: Rheumatoid arthritis
     Dosage: 20 MG, ROUTE OF ADMINISTRATION: UNKNOWN
     Route: 065
  7. ARAVA [Suspect]
     Active Substance: LEFLUNOMIDE
     Dosage: 20 MG, ROUTE OF ADMINISTRATION: UNKNOWN
     Route: 065
  8. ARAVA [Suspect]
     Active Substance: LEFLUNOMIDE
     Dosage: 20 UNK, QD
     Route: 048
  9. ARAVA [Suspect]
     Active Substance: LEFLUNOMIDE
     Dosage: 2000 MG, ROUTE OF ADMINISTRATION:  UNKNOWN
     Route: 065
  10. ARAVA [Suspect]
     Active Substance: LEFLUNOMIDE
     Dosage: UNK
     Route: 048
  11. ARAVA [Suspect]
     Active Substance: LEFLUNOMIDE
     Dosage: UNK, ROUTE OF ADMINISTRATION: UNKNOWN
     Route: 065
  12. ARAVA [Suspect]
     Active Substance: LEFLUNOMIDE
     Dosage: UNKUNK, ROUTE OF ADMINISTRATION: UNKNOWN
     Route: 065
  13. ASACOL [Suspect]
     Active Substance: MESALAMINE
     Indication: Product used for unknown indication
     Dosage: UNK, ROUTE OF ADMINISTRATION: UNKNOWN
     Route: 065
  14. ATIVAN [Suspect]
     Active Substance: LORAZEPAM
     Indication: Product used for unknown indication
     Dosage: UNK, ROUTE OF ADMINISTRATION: UNKNOWN
     Route: 065
  15. CELECOXIB [Suspect]
     Active Substance: CELECOXIB
     Dosage: 2 DF
     Route: 048
  16. CELECOXIB [Suspect]
     Active Substance: CELECOXIB
     Dosage: 20 MG, ROUTE OF ADMINISTRATION: UNKNOWN
     Route: 065
  17. CELECOXIB [Suspect]
     Active Substance: CELECOXIB
     Dosage: 200 MG, ROUTE OF ADMINISTRATION:  UNKNOWN
     Route: 065
  18. CELECOXIB [Suspect]
     Active Substance: CELECOXIB
     Dosage: 7.5 MG
     Route: 048
  19. CELECOXIB [Suspect]
     Active Substance: CELECOXIB
     Dosage: UNK
     Route: 048
  20. CELECOXIB [Suspect]
     Active Substance: CELECOXIB
     Dosage: UNK
     Route: 048
  21. CELECOXIB [Suspect]
     Active Substance: CELECOXIB
     Dosage: UNK
     Route: 048
  22. CELECOXIB [Suspect]
     Active Substance: CELECOXIB
     Dosage: UNK
     Route: 048
  23. CELECOXIB [Suspect]
     Active Substance: CELECOXIB
     Dosage: UNK
     Route: 048
  24. CELECOXIB [Suspect]
     Active Substance: CELECOXIB
     Indication: Rheumatoid arthritis
     Dosage: UNK, ROUTE OF ADMINISTRATION: UNKNOWN
     Route: 065
  25. CAFFEINE [Suspect]
     Active Substance: CAFFEINE
     Indication: Rheumatoid arthritis
     Dosage: 40 MG, ROUTE OF ADMINISTRATION: UNKNOWN
     Route: 065
  26. CAFFEINE [Suspect]
     Active Substance: CAFFEINE
     Dosage: UNK
     Route: 058
  27. CALCIUM GLUBIONATE [Suspect]
     Active Substance: CALCIUM GLUBIONATE
     Dosage: 40 MG
     Route: 048
  28. CALCIUM GLUBIONATE [Suspect]
     Active Substance: CALCIUM GLUBIONATE
     Dosage: 5 MG, ROUTE OF ADMINISTRATION: UNKNOWN
     Route: 065
  29. CALCIUM GLUBIONATE [Suspect]
     Active Substance: CALCIUM GLUBIONATE
     Dosage: 5 MG, ROUTE OF ADMINISTRATION: UNKNOWN
     Route: 065
  30. CALCIUM GLUBIONATE [Suspect]
     Active Substance: CALCIUM GLUBIONATE
     Dosage: 7.5 MG
     Route: 048
  31. CALCIUM GLUBIONATE [Suspect]
     Active Substance: CALCIUM GLUBIONATE
     Dosage: UNK
     Route: 048
  32. CALCIUM GLUBIONATE [Suspect]
     Active Substance: CALCIUM GLUBIONATE
     Dosage: UNK, ROUTE OF ADMINISTRATION: UNKNOWN
     Route: 065
  33. CALCIUM GLUBIONATE [Suspect]
     Active Substance: CALCIUM GLUBIONATE
     Indication: Rheumatoid arthritis
     Dosage: UNK, ROUTE OF ADMINISTRATION:  INTRAVENOUS DRIP
     Route: 041
  34. CALCIUM GLUBIONATE [Suspect]
     Active Substance: CALCIUM GLUBIONATE
     Dosage: UNKUNK, ROUTE OF ADMINISTRATION:  INTRACARDIAC
     Route: 016
  35. CALCIUM LACTATE [Suspect]
     Active Substance: CALCIUM LACTATE
     Indication: Rheumatoid arthritis
     Dosage: UNK, ROUTE OF ADMINISTRATION: UNKNOWN
     Route: 065
  36. CHLORAPREP [Suspect]
     Active Substance: CHLORHEXIDINE GLUCONATE\ISOPROPYL ALCOHOL
     Dosage: UNK, DOSE FORM: SOLUTION
     Route: 048
  37. CHLORAPREP [Suspect]
     Active Substance: CHLORHEXIDINE GLUCONATE\ISOPROPYL ALCOHOL
     Indication: Product used for unknown indication
     Dosage: UNK, ROUTE OF ADMINISTRATION: UNKNOWN, DOSE FORM: SOLUTION
     Route: 065
  38. CODEINE [Suspect]
     Active Substance: CODEINE
     Dosage: 50 MG, PATIENT ROA: SUBDERMAL
     Route: 059
  39. CODEINE [Suspect]
     Active Substance: CODEINE
     Dosage: UNK, PATIENT ROA: INTRACARDIAC
     Route: 016
  40. CODEINE [Suspect]
     Active Substance: CODEINE
     Dosage: UNK, PATIENT ROA: INTRAVENOUS DRIP
     Route: 042
  41. CODEINE [Suspect]
     Active Substance: CODEINE
     Indication: Rheumatoid arthritis
     Dosage: UNK, PATIENT ROA: PERIARTICULAR
     Route: 052
  42. CODEINE [Suspect]
     Active Substance: CODEINE
     Dosage: UNK, PATIENT ROA: SUBDERMAL
     Route: 059
  43. CODEINE [Suspect]
     Active Substance: CODEINE
     Dosage: UNK, PATIENT ROA: SUBDERMAL
     Route: 059
  44. CODEINE [Suspect]
     Active Substance: CODEINE
     Indication: Product used for unknown indication
     Dosage: UNK, ROUTE OF ADMINISTRATION: UNKNOWN
     Route: 065
  45. CODEINE [Suspect]
     Active Substance: CODEINE
     Indication: Psoriatic arthropathy
     Dosage: UNK, ROUTE OF ADMINISTRATION: UNKNOWN
     Route: 065
  46. CORTISONE [Suspect]
     Active Substance: CORTISONE
     Indication: Product used for unknown indication
     Dosage: UNK, ROUTE OF ADMINISTRATION: UNKNOWN
     Route: 065
  47. CORTISONE [Suspect]
     Active Substance: CORTISONE
     Dosage: UNK, ROUTE OF ADMINISTRATION: UNKNOWN
     Route: 065
  48. DICLOFENAC SODIUM [Suspect]
     Active Substance: DICLOFENAC SODIUM
     Indication: Rheumatoid arthritis
     Dosage: 50 MG, ROUTE OF ADMINISTRATION:  UNKNOWN, FORMULATION: TABLET
     Route: 065
  49. DICLOFENAC SODIUM [Suspect]
     Active Substance: DICLOFENAC SODIUM
     Indication: Rheumatoid arthritis
     Dosage: 50 MG, ROUTE OF ADMINISTRATION: UNKNOWN
     Route: 065
  50. DIPHENHYDRAMINE [Suspect]
     Active Substance: DIPHENHYDRAMINE
     Indication: Product used for unknown indication
     Dosage: UNK, DOSE FORM AND ROUTE OF ADMINISTRATION: UNKNOWN
     Route: 065
  51. DIPHENHYDRAMINE [Suspect]
     Active Substance: DIPHENHYDRAMINE
     Dosage: UNK, ROUTE OF ADMINISTRATION: UNKNOWN
     Route: 065
  52. DOXYCYCLINE HYCLATE [Suspect]
     Active Substance: DOXYCYCLINE HYCLATE
     Dosage: 10 MG
     Route: 048
  53. DOXYCYCLINE HYCLATE [Suspect]
     Active Substance: DOXYCYCLINE HYCLATE
     Dosage: 20 MG
     Route: 048
  54. DOXYCYCLINE HYCLATE [Suspect]
     Active Substance: DOXYCYCLINE HYCLATE
     Dosage: 40 MG, ROUTE OF ADMINISTRATION: UNKNOWN
     Route: 065
  55. DOXYCYCLINE HYCLATE [Suspect]
     Active Substance: DOXYCYCLINE HYCLATE
     Indication: Rheumatoid arthritis
     Dosage: UNK
     Route: 005
  56. DOXYCYCLINE HYCLATE [Suspect]
     Active Substance: DOXYCYCLINE HYCLATE
     Dosage: UNK
     Route: 048
  57. DOXYCYCLINE HYCLATE [Suspect]
     Active Substance: DOXYCYCLINE HYCLATE
     Dosage: UNK
     Route: 048
  58. DOXYCYCLINE HYCLATE [Suspect]
     Active Substance: DOXYCYCLINE HYCLATE
     Dosage: UNK
     Route: 058
  59. DOXYCYCLINE HYCLATE [Suspect]
     Active Substance: DOXYCYCLINE HYCLATE
     Dosage: UNK, ROUTE OF ADMINISTRATION: UNKNOWN
     Route: 065
  60. ENBREL [Suspect]
     Active Substance: ETANERCEPT
     Indication: Psoriatic arthropathy
     Dosage: 1 DOSAGE FORM, QW, ROUTE OF ADMINISTRATION: UNKNOWN
     Route: 065
  61. ENBREL [Suspect]
     Active Substance: ETANERCEPT
     Dosage: 1 DOSAGE FORM
     Route: 058
  62. ENBREL [Suspect]
     Active Substance: ETANERCEPT
     Dosage: 100 MG, QD
     Route: 058
  63. ENBREL [Suspect]
     Active Substance: ETANERCEPT
     Dosage: 20 MG, QW
     Route: 058
  64. ENBREL [Suspect]
     Active Substance: ETANERCEPT
     Dosage: 20 MG, QD
     Route: 058
  65. ENBREL [Suspect]
     Active Substance: ETANERCEPT
     Dosage: 20 MG
     Route: 058
  66. ENBREL [Suspect]
     Active Substance: ETANERCEPT
     Dosage: 20 MG, Q2W
     Route: 058
  67. ENBREL [Suspect]
     Active Substance: ETANERCEPT
     Dosage: 20 MG, Q2W
     Route: 058
  68. ENBREL [Suspect]
     Active Substance: ETANERCEPT
     Dosage: 20 MG, Q2W, ROUTE OF ADMINISTRATION: UNKNOWN
     Route: 065
  69. ENBREL [Suspect]
     Active Substance: ETANERCEPT
     Dosage: 20 MG, Q2W, ROUTE OF ADMINISTRATION: UNKNOWN
     Route: 065
  70. ENBREL [Suspect]
     Active Substance: ETANERCEPT
     Dosage: 20 MG, ROUTE OF ADMINISTRATION: SUBDERMAL
     Route: 065
  71. ENBREL [Suspect]
     Active Substance: ETANERCEPT
     Indication: Rheumatoid arthritis
     Dosage: 50 MG
     Route: 058
  72. ENBREL [Suspect]
     Active Substance: ETANERCEPT
     Dosage: 50 MG
     Route: 058
  73. ENBREL [Suspect]
     Active Substance: ETANERCEPT
     Dosage: 50 MG, ROUTE OF ADMINISTRATION: SUBDERMAL
     Route: 065
  74. ENBREL [Suspect]
     Active Substance: ETANERCEPT
     Dosage: 90 MG
     Route: 058
  75. ENBREL [Suspect]
     Active Substance: ETANERCEPT
     Dosage: 90 MG, ROUTE OF ADMINISTRATION: SUBDERMAL
     Route: 065
  76. ENBREL [Suspect]
     Active Substance: ETANERCEPT
     Dosage: UNK
     Route: 048
  77. ENBREL [Suspect]
     Active Substance: ETANERCEPT
     Dosage: UNK
     Route: 058
  78. ENBREL [Suspect]
     Active Substance: ETANERCEPT
     Dosage: UNK, ROUTE OF ADMINISTRATION: UNKNOWN
     Route: 065
  79. ENBREL [Suspect]
     Active Substance: ETANERCEPT
     Dosage: UNK, ROUTE OF ADMINISTRATION: UNKNOWN
     Route: 065
  80. ETHINYL ESTRADIOL\NORETHINDRONE [Suspect]
     Active Substance: ETHINYL ESTRADIOL\NORETHINDRONE
     Indication: Product used for unknown indication
     Dosage: UNK, ROUTE OF ADMINISTRATION: UNKNOWN
     Route: 065
  81. GLUCOSAMINE [Suspect]
     Active Substance: GLUCOSAMINE
     Indication: Rheumatoid arthritis
     Dosage: UNK
     Route: 048
  82. HUMIRA [Suspect]
     Active Substance: ADALIMUMAB
     Indication: Fibromyalgia
     Dosage: UNK, DOSE FORM: SOLUTION SUBCUTANEOUS
     Route: 048
  83. HYALURONIDASE [Suspect]
     Active Substance: HYALURONIDASE
     Indication: Rheumatoid arthritis
     Dosage: 2000 MG, QD
     Route: 048
  84. HYALURONIDASE [Suspect]
     Active Substance: HYALURONIDASE
     Dosage: UNK, ROUTE OF ADMINISTRATION: UNKNOWN
     Route: 065
  85. HYDROCORTISONE BUTYRATE [Suspect]
     Active Substance: HYDROCORTISONE BUTYRATE
     Dosage: UNK
     Route: 048
  86. HYDROCORTISONE BUTYRATE [Suspect]
     Active Substance: HYDROCORTISONE BUTYRATE
     Indication: Rheumatoid arthritis
     Dosage: UNK, ROUTE OF ADMINISTRATION: UNKNOWN
     Route: 065
  87. HYDROCORTISONE SODIUM SUCCINATE [Suspect]
     Active Substance: HYDROCORTISONE SODIUM SUCCINATE
     Dosage: UNK, DOSE FORM: POWDER FOR SOLUTION, ROUTE OF ADMINISTRATION: UNKNOWN
     Route: 065
  88. HYDROCORTISONE SODIUM SUCCINATE [Suspect]
     Active Substance: HYDROCORTISONE SODIUM SUCCINATE
     Indication: Rheumatoid arthritis
     Dosage: UNK, ROUTE OF ADMINISTRATION: SUBDERMAL
     Route: 059
  89. HYDROXYCHLOROQUINE [Suspect]
     Active Substance: HYDROXYCHLOROQUINE
     Dosage: 200 MG, QD
     Route: 066
  90. HYDROXYCHLOROQUINE [Suspect]
     Active Substance: HYDROXYCHLOROQUINE
     Dosage: 40 MG
     Route: 048
  91. HYDROXYCHLOROQUINE [Suspect]
     Active Substance: HYDROXYCHLOROQUINE
     Dosage: 400 MG, QD, ROUTE OF ADMINISTRATION: UNKNOWN
     Route: 065
  92. HYDROXYCHLOROQUINE [Suspect]
     Active Substance: HYDROXYCHLOROQUINE
     Dosage: 400 MG, QD
     Route: 048
  93. HYDROXYCHLOROQUINE [Suspect]
     Active Substance: HYDROXYCHLOROQUINE
     Dosage: 400 MG, QD
     Route: 066
  94. HYDROXYCHLOROQUINE [Suspect]
     Active Substance: HYDROXYCHLOROQUINE
     Indication: Systemic lupus erythematosus
     Dosage: UNK
     Route: 048
  95. HYDROXYCHLOROQUINE [Suspect]
     Active Substance: HYDROXYCHLOROQUINE
     Dosage: UNK
     Route: 048
  96. HYDROXYCHLOROQUINE [Suspect]
     Active Substance: HYDROXYCHLOROQUINE
     Indication: Rheumatoid arthritis
     Dosage: UNK, ROUTE OF ADMINISTRATION: UNKNOWN
     Route: 065
  97. HYDROXYCHLOROQUINE [Suspect]
     Active Substance: HYDROXYCHLOROQUINE
     Dosage: UNK, ROUTE OF ADMINISTRATION: UNKNOWN
     Route: 065
  98. HYDROXYCHLOROQUINE [Suspect]
     Active Substance: HYDROXYCHLOROQUINE
     Dosage: UNK, ROUTE OF ADMINISTRATION: UNKNOWN
     Route: 065
  99. HYDROXYCHLOROQUINE [Suspect]
     Active Substance: HYDROXYCHLOROQUINE
     Dosage: UNK, ROUTE OF ADMINISTRATION: UNKNOWN
     Route: 065
  100. HYDROXYCHLOROQUINE [Suspect]
     Active Substance: HYDROXYCHLOROQUINE
     Dosage: UNK, ROUTE OF ADMINISTRATION: UNKNOWN
     Route: 065
  101. HYDROXYCHLOROQUINE [Suspect]
     Active Substance: HYDROXYCHLOROQUINE
     Dosage: UNK, ROUTE OF ADMINISTRATION: UNKNOWN
     Route: 065
  102. HYDROXYCHLOROQUINE SULFATE [Suspect]
     Active Substance: HYDROXYCHLOROQUINE SULFATE
     Dosage: 40 MG, QD, ROUTE OF ADMINISTRATION: UNKNOWN
     Route: 065
  103. HYDROXYCHLOROQUINE SULFATE [Suspect]
     Active Substance: HYDROXYCHLOROQUINE SULFATE
     Dosage: 40 MG
     Route: 048
  104. HYDROXYCHLOROQUINE SULFATE [Suspect]
     Active Substance: HYDROXYCHLOROQUINE SULFATE
     Dosage: 400 MG, QD
     Route: 048
  105. HYDROXYCHLOROQUINE SULFATE [Suspect]
     Active Substance: HYDROXYCHLOROQUINE SULFATE
     Dosage: 400 MG, QD
     Route: 048
  106. HYDROXYCHLOROQUINE SULFATE [Suspect]
     Active Substance: HYDROXYCHLOROQUINE SULFATE
     Dosage: 400 MG, QD, ROUTE OF ADMINISTRATION: UNKNOWN
     Route: 065
  107. HYDROXYCHLOROQUINE SULFATE [Suspect]
     Active Substance: HYDROXYCHLOROQUINE SULFATE
     Dosage: 400 MG, QD, ROUTE OF ADMINISTRATION: UNKNOWN
     Route: 065
  108. HYDROXYCHLOROQUINE SULFATE [Suspect]
     Active Substance: HYDROXYCHLOROQUINE SULFATE
     Dosage: 400 MG
     Route: 048
  109. HYDROXYCHLOROQUINE SULFATE [Suspect]
     Active Substance: HYDROXYCHLOROQUINE SULFATE
     Dosage: 420 MG, QD
     Route: 048
  110. HYDROXYCHLOROQUINE SULFATE [Suspect]
     Active Substance: HYDROXYCHLOROQUINE SULFATE
     Dosage: 420 MG, QD
     Route: 065
  111. HYDROXYCHLOROQUINE SULFATE [Suspect]
     Active Substance: HYDROXYCHLOROQUINE SULFATE
     Dosage: 5 MG
     Route: 048
  112. HYDROXYCHLOROQUINE SULFATE [Suspect]
     Active Substance: HYDROXYCHLOROQUINE SULFATE
     Dosage: UNK
     Route: 016
  113. HYDROXYCHLOROQUINE SULFATE [Suspect]
     Active Substance: HYDROXYCHLOROQUINE SULFATE
     Indication: Rheumatoid arthritis
     Dosage: UNK, ROUTE OF ADMINISTRATION: UNKNOWN
     Route: 065
  114. HYDROXYCHLOROQUINE SULFATE [Suspect]
     Active Substance: HYDROXYCHLOROQUINE SULFATE
     Dosage: UNK, ROUTE OF ADMINISTRATION: UNKNOWN
     Route: 065
  115. HYDROXYCHLOROQUINE SULFATE [Suspect]
     Active Substance: HYDROXYCHLOROQUINE SULFATE
     Dosage: UNK, ROUTE OF ADMINISTRATION: UNKNOWN
     Route: 065
  116. HYDROXYCHLOROQUINE SULFATE [Suspect]
     Active Substance: HYDROXYCHLOROQUINE SULFATE
     Dosage: UNK, ROUTE OF ADMINISTRATION: UNKNOWN
     Route: 065
  117. ISOPROPYL ALCOHOL [Suspect]
     Active Substance: ISOPROPYL ALCOHOL
     Dosage: 10 MG
     Route: 048
  118. ISOPROPYL ALCOHOL [Suspect]
     Active Substance: ISOPROPYL ALCOHOL
     Dosage: 10 MG
     Route: 048
  119. ISOPROPYL ALCOHOL [Suspect]
     Active Substance: ISOPROPYL ALCOHOL
     Indication: Product used for unknown indication
     Dosage: UNK, DOSE FORM: LIQUID TOPICAL, ROUTE OF ADMINISTRATION: UNKNOWN
     Route: 065
  120. ISOPROPYL ALCOHOL [Suspect]
     Active Substance: ISOPROPYL ALCOHOL
     Indication: Product used for unknown indication
     Dosage: UNK, ROUTE OF ADMINISTRATION: UNKNOWN
     Route: 065
  121. LORAZEPAM [Suspect]
     Active Substance: LORAZEPAM
     Dosage: UNK, ROUTE OF ADMINISTRATION: UNKNOWN
     Route: 065
  122. LORAZEPAM [Suspect]
     Active Substance: LORAZEPAM
     Indication: Product used for unknown indication
     Dosage: UNK, ROUTE OF ADMINISTRATION: UNKNOWN, DOSE FORM: UNKNOWN
     Route: 065
  123. CLIOQUINOL\FLUMETHASONE [Suspect]
     Active Substance: CLIOQUINOL\FLUMETHASONE
     Dosage: 1000 MG
     Route: 048
  124. CLIOQUINOL\FLUMETHASONE [Suspect]
     Active Substance: CLIOQUINOL\FLUMETHASONE
     Dosage: 1000 MG
     Route: 048
  125. CLIOQUINOL\FLUMETHASONE [Suspect]
     Active Substance: CLIOQUINOL\FLUMETHASONE
     Dosage: 1000 MG, ROUTE OF ADMINISTRATION: UNKNOWN
     Route: 065
  126. CLIOQUINOL\FLUMETHASONE [Suspect]
     Active Substance: CLIOQUINOL\FLUMETHASONE
     Dosage: 2000 MG
     Route: 048
  127. CLIOQUINOL\FLUMETHASONE [Suspect]
     Active Substance: CLIOQUINOL\FLUMETHASONE
     Dosage: 400 MG, QD
     Route: 048
  128. CLIOQUINOL\FLUMETHASONE [Suspect]
     Active Substance: CLIOQUINOL\FLUMETHASONE
     Dosage: 400 MG, ROUTE OF ADMINISTRATION: UNKNOWN
     Route: 065
  129. CLIOQUINOL\FLUMETHASONE [Suspect]
     Active Substance: CLIOQUINOL\FLUMETHASONE
     Dosage: 500 MG
     Route: 048
  130. CLIOQUINOL\FLUMETHASONE [Suspect]
     Active Substance: CLIOQUINOL\FLUMETHASONE
     Dosage: 500 MG
     Route: 048
  131. CLIOQUINOL\FLUMETHASONE [Suspect]
     Active Substance: CLIOQUINOL\FLUMETHASONE
     Indication: Rheumatoid arthritis
     Dosage: UNK
     Route: 048
  132. CLIOQUINOL\FLUMETHASONE [Suspect]
     Active Substance: CLIOQUINOL\FLUMETHASONE
     Dosage: UNK, ROUTE OF ADMINISTRATION: UNKNOWN
     Route: 065
  133. CLIOQUINOL\FLUMETHASONE [Suspect]
     Active Substance: CLIOQUINOL\FLUMETHASONE
     Dosage: UNK, ROUTE OF ADMINISTRATION: UNKNOWN
     Route: 065
  134. MELOXICAM [Suspect]
     Active Substance: MELOXICAM
     Indication: Product used for unknown indication
     Dosage: UNK, ROUTE OF ADMINISTRATION: UNKNOWN
     Route: 065
  135. MELOXICAM [Suspect]
     Active Substance: MELOXICAM
     Dosage: UNK, ROUTE OF ADMINISTRATION: UNKNOWN
     Route: 065
  136. MORPHINE [Suspect]
     Active Substance: MORPHINE
     Indication: Rheumatoid arthritis
     Dosage: UNK
     Route: 048
  137. NAPROXEN SODIUM [Suspect]
     Active Substance: NAPROXEN SODIUM
     Indication: Product used for unknown indication
     Dosage: UNK, ROUTE OF ADMINISTRATION: UNKNOWN
     Route: 065
  138. OXYCODONE AND ACETAMINOPHEN [Suspect]
     Active Substance: ACETAMINOPHEN\OXYCODONE HYDROCHLORIDE
     Indication: Product used for unknown indication
     Dosage: 17.857 UNK 17.86 MG, ROUTE OF ADMINISTRATION:  UNKNOWN
     Route: 065
  139. OXYCODONE AND ACETAMINOPHEN [Suspect]
     Active Substance: ACETAMINOPHEN\OXYCODONE HYDROCHLORIDE
     Dosage: UNK UNK, ROUTE OF ADMINISTRATION: UNKNOWN
     Route: 065
  140. OXYCODONE AND ACETAMINOPHEN [Suspect]
     Active Substance: ACETAMINOPHEN\OXYCODONE HYDROCHLORIDE
     Dosage: UNKUNK, ROUTE OF ADMINISTRATION: UNKNOWN
     Route: 065
  141. PANTOPRAZOLE [Suspect]
     Active Substance: PANTOPRAZOLE
     Dosage: 25 MG, DOSE FORM: UNKNOWN
     Route: 048
  142. PANTOPRAZOLE [Suspect]
     Active Substance: PANTOPRAZOLE
     Dosage: 25 MG, DOSE FORM: UNKNOWN
     Route: 048
  143. PANTOPRAZOLE [Suspect]
     Active Substance: PANTOPRAZOLE
     Dosage: 25 MG, DOSE FORM: UNKNOWN, ROUTE OF  ADMINISTRATION: UNKNOWN
     Route: 065
  144. PANTOPRAZOLE [Suspect]
     Active Substance: PANTOPRAZOLE
     Dosage: 25 MG, DOSE FORM: UNKNOWN, ROUTE OF  ADMINISTRATION: UNKNOWN
     Route: 065
  145. PANTOPRAZOLE [Suspect]
     Active Substance: PANTOPRAZOLE
     Dosage: 25 MG, DOSE FORM: UNKNOWN, ROUTE OF  ADMINISTRATION: UNKNOWN
     Route: 065
  146. PANTOPRAZOLE [Suspect]
     Active Substance: PANTOPRAZOLE
     Dosage: 25 MG, DOSE FORM: UNKNOWN, ROUTE OF  ADMINISTRATION: UNKNOWN
     Route: 065
  147. PANTOPRAZOLE [Suspect]
     Active Substance: PANTOPRAZOLE
     Dosage: 25 MG, DOSE FORM: UNKNOWN, ROUTE OF  ADMINISTRATION: UNKNOWN
     Route: 065
  148. PANTOPRAZOLE [Suspect]
     Active Substance: PANTOPRAZOLE
     Dosage: 25 MG, DOSE FORM: UNKNOWN, ROUTE OF  ADMINISTRATION: SUBDERMAL
     Route: 065
  149. PANTOPRAZOLE [Suspect]
     Active Substance: PANTOPRAZOLE
     Dosage: UNK UNK, DOSE FORM: UNKNOWN, ROUTE OF  ADMINISTRATION: UNKNOWN
     Route: 065
  150. PANTOPRAZOLE [Suspect]
     Active Substance: PANTOPRAZOLE
     Dosage: UNK, DOSE FORM: UNKNOWN, ROUTE OF  ADMINISTRATION: INTRACARDIAC
     Route: 065
  151. PANTOPRAZOLE [Suspect]
     Active Substance: PANTOPRAZOLE
     Indication: Product used for unknown indication
     Dosage: UNK, DOSE FORM: UNKNOWN, ROUTE OF  ADMINISTRATION: UNKNOWN
     Route: 065
  152. PANTOPRAZOLE [Suspect]
     Active Substance: PANTOPRAZOLE
     Dosage: UNK, DOSE FORM: UNKNOWN, ROUTE OF  ADMINISTRATION: UNKNOWN
     Route: 065
  153. PANTOPRAZOLE [Suspect]
     Active Substance: PANTOPRAZOLE
     Dosage: UNK, DOSE FORM: UNKNOWN, ROUTE OF  ADMINISTRATION: UNKNOWN
     Route: 065
  154. PANTOPRAZOLE [Suspect]
     Active Substance: PANTOPRAZOLE
     Dosage: UNK, DOSE FORM: UNKNOWN, ROUTE OF  ADMINISTRATION: UNKNOWN
     Route: 065
  155. PANTOPRAZOLE [Suspect]
     Active Substance: PANTOPRAZOLE
     Dosage: UNK, DOSE FORM: UNKNOWN, ROUTE OF  ADMINISTRATION: UNKNOWN
     Route: 065
  156. PANTOPRAZOLE [Suspect]
     Active Substance: PANTOPRAZOLE
     Dosage: UNK, DOSE FORM: UNKNOWN, ROUTE OF  ADMINISTRATION: SUBDERMAL
     Route: 065
  157. PREGABALIN [Suspect]
     Active Substance: PREGABALIN
     Indication: Product used for unknown indication
     Dosage: 17.857 MG, ROUTE OF ADMINISTRATION:  UNKNOWN, FORMULATION: TABLET
     Route: 065
  158. PREGABALIN [Suspect]
     Active Substance: PREGABALIN
     Indication: Product used for unknown indication
     Dosage: 17.857 MG, ROUTE OF ADMINISTRATION:  UNKNOWN, FORMULATION: UNKNOWN
     Route: 065
  159. DICLOFENAC SODIUM [Suspect]
     Active Substance: DICLOFENAC SODIUM
     Indication: Rheumatoid arthritis
     Dosage: 50 MG, ROUTE OF ADMINISTRATION: UNKNOWN
     Route: 065
  160. DICLOFENAC SODIUM [Suspect]
     Active Substance: DICLOFENAC SODIUM
     Dosage: 50 MG, ROUTE OF ADMINISTRATION: UNKNOWN
     Route: 065
  161. DICLOFENAC SODIUM [Suspect]
     Active Substance: DICLOFENAC SODIUM
     Dosage: UNK, ROUTE OF ADMINISTRATION: UNKNOWN
     Route: 065
  162. DICLOFENAC SODIUM [Suspect]
     Active Substance: DICLOFENAC SODIUM
     Dosage: UNK, ROUTE OF ADMINISTRATION: UNKNOWN
     Route: 065
  163. PARA-AMINOSALICYLIC ACID [Suspect]
     Active Substance: AMINOSALICYLIC ACID
     Dosage: 300 MG, ROUTE OF ADMINISTRATION: INTRAVENOUS DRIP
     Route: 041
  164. PARA-AMINOSALICYLIC ACID [Suspect]
     Active Substance: AMINOSALICYLIC ACID
     Indication: Colitis ulcerative
     Dosage: 400 MG, ROUTE OF ADMINISTRATION: INTRAVENOUS DRIP
     Route: 041
  165. PARA-AMINOSALICYLIC ACID [Suspect]
     Active Substance: AMINOSALICYLIC ACID
     Indication: Crohn^s disease
     Dosage: 5 MG, ROUTE OF ADMINISTRATION: INTRAVENOUS DRIP
     Route: 041
  166. PARA-AMINOSALICYLIC ACID [Suspect]
     Active Substance: AMINOSALICYLIC ACID
     Dosage: 500 MG
     Route: 041
  167. PARA-AMINOSALICYLIC ACID [Suspect]
     Active Substance: AMINOSALICYLIC ACID
     Indication: Ankylosing spondylitis
     Dosage: 500 MG, ROUTE OF ADMINISTRATION: INTRAVENOUS DRIP
     Route: 041
  168. PARA-AMINOSALICYLIC ACID [Suspect]
     Active Substance: AMINOSALICYLIC ACID
     Indication: Psoriasis
     Dosage: UNK, ROUTE OF ADMINISTRATION: INTRAVENOUS DRIP
     Route: 041
  169. PARA-AMINOSALICYLIC ACID [Suspect]
     Active Substance: AMINOSALICYLIC ACID
     Indication: Psoriatic arthropathy
     Dosage: UNK, ROUTE OF ADMINISTRATION: INTRAVENOUS DRIP
     Route: 041
  170. PARA-AMINOSALICYLIC ACID [Suspect]
     Active Substance: AMINOSALICYLIC ACID
     Indication: Rheumatoid arthritis
     Dosage: UNK, ROUTE OF ADMINISTRATION: INTRAVENOUS DRIP
     Route: 041
  171. PARA-AMINOSALICYLIC ACID [Suspect]
     Active Substance: AMINOSALICYLIC ACID
     Dosage: UNK, ROUTE OF ADMINISTRATION: UNKNOWN
     Route: 065
  172. PARA-AMINOSALICYLIC ACID [Suspect]
     Active Substance: AMINOSALICYLIC ACID
     Dosage: UNK, ROUTE OF ADMINISTRATION: UNKNOWN
     Route: 065
  173. PARA-AMINOSALICYLIC ACID [Suspect]
     Active Substance: AMINOSALICYLIC ACID
     Dosage: UNK, ROUTE OF ADMINISTRATION: UNKNOWN
     Route: 065
  174. PARA-AMINOSALICYLIC ACID [Suspect]
     Active Substance: AMINOSALICYLIC ACID
     Dosage: UNK, ROUTE OF ADMINISTRATION: UNKNOWN
     Route: 065
  175. PARA-AMINOSALICYLIC ACID [Suspect]
     Active Substance: AMINOSALICYLIC ACID
     Dosage: UNK, ROUTE OF ADMINISTRATION: UNKNOWN
     Route: 065
  176. PARA-AMINOSALICYLIC ACID [Suspect]
     Active Substance: AMINOSALICYLIC ACID
     Dosage: UNK, ROUTE OF ADMINISTRATION: UNKNOWN
     Route: 065
  177. PHTHALYLSULFATHIAZOLE [Suspect]
     Active Substance: PHTHALYLSULFATHIAZOLE
     Indication: Urticaria
     Dosage: 10 MG, QD
     Route: 048
  178. PHTHALYLSULFATHIAZOLE [Suspect]
     Active Substance: PHTHALYLSULFATHIAZOLE
     Indication: Rheumatoid arthritis
     Dosage: UNK, PATIENT ROA: INTRACARDIAC
     Route: 016
  179. PHTHALYLSULFATHIAZOLE [Suspect]
     Active Substance: PHTHALYLSULFATHIAZOLE
     Dosage: 10 MG
     Route: 048
  180. PHTHALYLSULFATHIAZOLE [Suspect]
     Active Substance: PHTHALYLSULFATHIAZOLE
     Dosage: 10 MG, ROUTE OF ADMINISTRATION: UNKNOWN
     Route: 065
  181. PHTHALYLSULFATHIAZOLE [Suspect]
     Active Substance: PHTHALYLSULFATHIAZOLE
     Dosage: 10 MG, ROUTE OF ADMINISTRATION: UNKNOWN
     Route: 065
  182. PHTHALYLSULFATHIAZOLE [Suspect]
     Active Substance: PHTHALYLSULFATHIAZOLE
     Dosage: 25 MG
     Route: 048
  183. PHTHALYLSULFATHIAZOLE [Suspect]
     Active Substance: PHTHALYLSULFATHIAZOLE
     Dosage: 25 MG, ROUTE OF ADMINISTRATION: UNKNOWN
     Route: 065
  184. PHTHALYLSULFATHIAZOLE [Suspect]
     Active Substance: PHTHALYLSULFATHIAZOLE
     Dosage: 25 MG, ROUTE OF ADMINISTRATION: UNKNOWN
     Route: 065
  185. PHTHALYLSULFATHIAZOLE [Suspect]
     Active Substance: PHTHALYLSULFATHIAZOLE
     Dosage: UNK
     Route: 048
  186. PHTHALYLSULFATHIAZOLE [Suspect]
     Active Substance: PHTHALYLSULFATHIAZOLE
     Dosage: UNK, ROUTE OF ADMINISTRATION: INTRAVENOUS DRIP
     Route: 041
  187. PHTHALYLSULFATHIAZOLE [Suspect]
     Active Substance: PHTHALYLSULFATHIAZOLE
     Dosage: UNK, ROUTE OF ADMINISTRATION: UNKNOWN
     Route: 065
  188. PIROXICAM [Suspect]
     Active Substance: PIROXICAM
     Indication: Product used for unknown indication
     Dosage: 17.86 MG, ROUTE OF ADMINISTRATION: UNKNOWN
     Route: 065
  189. PIROXICAM [Suspect]
     Active Substance: PIROXICAM
     Dosage: UNK, ROUTE OF ADMINISTRATION: UNKNOWN
     Route: 065
  190. PLAQUENIL [Suspect]
     Active Substance: HYDROXYCHLOROQUINE SULFATE
     Dosage: 1 DOSAGE FORM, QD, ROUTE OF ADMINISTRATION: UNKNOWN
     Route: 065
  191. PLAQUENIL [Suspect]
     Active Substance: HYDROXYCHLOROQUINE SULFATE
     Dosage: 1 DOSAGE FORM, ROUTE OF ADMINISTRATION: UNKNOWN
     Route: 065
  192. PLAQUENIL [Suspect]
     Active Substance: HYDROXYCHLOROQUINE SULFATE
     Dosage: 40 MG, QD
     Route: 048
  193. PLAQUENIL [Suspect]
     Active Substance: HYDROXYCHLOROQUINE SULFATE
     Indication: Rheumatoid arthritis
     Dosage: 40 MG
     Route: 048
  194. PLAQUENIL [Suspect]
     Active Substance: HYDROXYCHLOROQUINE SULFATE
     Dosage: 40 MG, ROUTE OF ADMINISTRATION: UNKNOWN
     Route: 065
  195. PLAQUENIL [Suspect]
     Active Substance: HYDROXYCHLOROQUINE SULFATE
     Dosage: 400 MG, QD, ROUTE OF ADMINISTRATION: UNKNOWN
     Route: 065
  196. PLAQUENIL [Suspect]
     Active Substance: HYDROXYCHLOROQUINE SULFATE
     Dosage: 400 MG, ROUTE OF ADMINISTRATION: UNKNOWN
     Route: 065
  197. PLAQUENIL [Suspect]
     Active Substance: HYDROXYCHLOROQUINE SULFATE
     Dosage: 420 MG, QD
     Route: 048
  198. PLAQUENIL [Suspect]
     Active Substance: HYDROXYCHLOROQUINE SULFATE
     Indication: Rheumatoid arthritis
     Dosage: 420 MG
     Route: 048
  199. PLAQUENIL [Suspect]
     Active Substance: HYDROXYCHLOROQUINE SULFATE
     Dosage: 420 MG, ROUTE OF ADMINISTRATION: UNKNOWN
     Route: 065
  200. PREDNISONE [Suspect]
     Active Substance: PREDNISONE
     Dosage: 1 MG, PATIENT ROA: INTRAVENOUS DRIP
     Route: 041
  201. PREDNISONE [Suspect]
     Active Substance: PREDNISONE
     Dosage: 10 MG
     Route: 048
  202. PREDNISONE [Suspect]
     Active Substance: PREDNISONE
     Dosage: 10 MG, ROUTE OF ADMINISTRATION: UNKNOWN
     Route: 065
  203. PREDNISONE [Suspect]
     Active Substance: PREDNISONE
     Indication: Rheumatoid arthritis
     Dosage: 200 MG
     Route: 048
  204. PREDNISONE [Suspect]
     Active Substance: PREDNISONE
     Dosage: 40 MG
     Route: 048
  205. PREDNISONE [Suspect]
     Active Substance: PREDNISONE
     Dosage: 40 MG, ROUTE OF ADMINISTRATION: UNKNOWN
     Route: 065
  206. PREDNISONE [Suspect]
     Active Substance: PREDNISONE
     Dosage: 5 MG, PATIENT ROA: INTRAVENOUS DRIP
     Route: 041
  207. PREDNISONE [Suspect]
     Active Substance: PREDNISONE
     Dosage: 5 MG, ROUTE OF ADMINISTRATION: UNKNOWN
     Route: 065
  208. PREDNISONE [Suspect]
     Active Substance: PREDNISONE
     Dosage: 7.5 UNK
     Route: 048
  209. PREDNISONE [Suspect]
     Active Substance: PREDNISONE
     Dosage: UNK UNK, ROUTE OF ADMINISTRATION: UNKNOWN
     Route: 065
  210. PREDNISONE [Suspect]
     Active Substance: PREDNISONE
     Dosage: UNK, PATIENT ROA: INTRAVENOUS DRIP
     Route: 041
  211. PREDNISONE [Suspect]
     Active Substance: PREDNISONE
     Dosage: UNK, ROUTE OF ADMINISTRATION: UNKNOWN
     Route: 065
  212. PREVACID [Suspect]
     Active Substance: LANSOPRAZOLE
     Indication: Product used for unknown indication
     Dosage: UNK, ROUTE OF ADMINISTRATION: UNKNOWN
     Route: 065
  213. PSEUDOEPHEDRINE [Suspect]
     Active Substance: PSEUDOEPHEDRINE
     Indication: Product used for unknown indication
     Dosage: UNK, ROUTE OF ADMINISTRATION: UNKNOWN
     Route: 065
  214. QUETIAPINE [Suspect]
     Active Substance: QUETIAPINE
     Dosage: 1 MG, DOSE FORM: UNKNOWN, PATIENT ROA:  SUBDERMAL
     Route: 059
  215. QUETIAPINE [Suspect]
     Active Substance: QUETIAPINE
     Indication: Product used for unknown indication
     Dosage: 4 MG, ROUTE OF ADMINISTRATION: UNKNOWN
     Route: 065
  216. QUETIAPINE [Suspect]
     Active Substance: QUETIAPINE
     Dosage: 40 MG, DOSE FORM: UNKNOWN, PATIENT  ROA: SUBDERMAL
     Route: 059
  217. QUETIAPINE [Suspect]
     Active Substance: QUETIAPINE
     Dosage: 400 MG, DOSE FORM: UNKNOWN
     Route: 065
  218. QUETIAPINE [Suspect]
     Active Substance: QUETIAPINE
     Dosage: UNK, DOSE FORM: UNKNOWN, PATIENT ROA:  SUBDERMAL
     Route: 059
  219. QUETIAPINE [Suspect]
     Active Substance: QUETIAPINE
     Dosage: UNK, ROUTE OF ADMINISTRATION: UNKNOWN,  DOSE FORM: UNKNOWN
     Route: 065
  220. RAMIPRIL [Suspect]
     Active Substance: RAMIPRIL
     Indication: Product used for unknown indication
     Dosage: UNK, ROUTE OF ADMINISTRATION: UNKNOWN
     Route: 065
  221. CETIRIZINE HYDROCHLORIDE [Suspect]
     Active Substance: CETIRIZINE HYDROCHLORIDE
     Dosage: 25 MG
     Route: 048
  222. CETIRIZINE HYDROCHLORIDE [Suspect]
     Active Substance: CETIRIZINE HYDROCHLORIDE
     Dosage: 25 MG
     Route: 048
  223. CETIRIZINE HYDROCHLORIDE [Suspect]
     Active Substance: CETIRIZINE HYDROCHLORIDE
     Dosage: 25 MG, ROUTE OF ADMINISTRATION: SUBDERMAL
     Route: 059
  224. CETIRIZINE HYDROCHLORIDE [Suspect]
     Active Substance: CETIRIZINE HYDROCHLORIDE
     Dosage: 25 MG, ROUTE OF ADMINISTRATION: UNKNOWN
     Route: 065
  225. CETIRIZINE HYDROCHLORIDE [Suspect]
     Active Substance: CETIRIZINE HYDROCHLORIDE
     Dosage: 25 MG, ROUTE OF ADMINISTRATION: UNKNOWN
     Route: 065
  226. CETIRIZINE HYDROCHLORIDE [Suspect]
     Active Substance: CETIRIZINE HYDROCHLORIDE
     Dosage: 25 MG, ROUTE OF ADMINISTRATION: UNKNOWN
     Route: 065
  227. CETIRIZINE HYDROCHLORIDE [Suspect]
     Active Substance: CETIRIZINE HYDROCHLORIDE
     Dosage: UNK
     Route: 048
  228. CETIRIZINE HYDROCHLORIDE [Suspect]
     Active Substance: CETIRIZINE HYDROCHLORIDE
     Dosage: UNK, ROUTE OF ADMINISTRATION: SUBDERMAL
     Route: 059
  229. CETIRIZINE HYDROCHLORIDE [Suspect]
     Active Substance: CETIRIZINE HYDROCHLORIDE
     Indication: Rheumatoid arthritis
     Dosage: UNK, ROUTE OF ADMINISTRATION: UNKNOWN
     Route: 065
  230. CETIRIZINE HYDROCHLORIDE [Suspect]
     Active Substance: CETIRIZINE HYDROCHLORIDE
     Dosage: UNK, ROUTE OF ADMINISTRATION: UNKNOWN
     Route: 065
  231. CETIRIZINE HYDROCHLORIDE [Suspect]
     Active Substance: CETIRIZINE HYDROCHLORIDE
     Dosage: UNK, ROUTE OF ADMINISTRATION: UNKNOWN
     Route: 065
  232. CETIRIZINE HYDROCHLORIDE [Suspect]
     Active Substance: CETIRIZINE HYDROCHLORIDE
     Dosage: UNK, ROUTE OF ADMINISTRATION: UNKNOWN
     Route: 065
  233. REMICADE [Suspect]
     Active Substance: INFLIXIMAB
     Indication: Rheumatoid arthritis
     Dosage: UNK, DOSE FORM: POWDER FOR SOLUTION INTRAVENOUS
     Route: 065
  234. DIETARY SUPPLEMENT\HERBALS [Suspect]
     Active Substance: DIETARY SUPPLEMENT\HERBALS
     Indication: Rheumatoid arthritis
     Dosage: UNK, DOSE FORM: DROPS ORAL, ROUTE OF ADMINISTRATION: UNKNOWN
     Route: 065
  235. DIETARY SUPPLEMENT\HERBALS [Suspect]
     Active Substance: DIETARY SUPPLEMENT\HERBALS
     Dosage: UNK, DOSE FORM: ORAL DROPS, ROUTE OF ADMINISTRATION: UNKNOWN
     Route: 065
  236. ALENDRONATE SODIUM [Suspect]
     Active Substance: ALENDRONATE SODIUM
     Dosage: 20 MG
     Route: 048
  237. ALENDRONATE SODIUM [Suspect]
     Active Substance: ALENDRONATE SODIUM
     Dosage: 20 MG, ROUTE OF ADMINISTRATION: UNKNOWN
     Route: 065
  238. ALENDRONATE SODIUM [Suspect]
     Active Substance: ALENDRONATE SODIUM
     Dosage: 2000 MG
     Route: 048
  239. ALENDRONATE SODIUM [Suspect]
     Active Substance: ALENDRONATE SODIUM
     Dosage: UNK 40 MG, PATIENT ROA: SUBDERMAL
     Route: 059
  240. ALENDRONATE SODIUM [Suspect]
     Active Substance: ALENDRONATE SODIUM
     Dosage: UNK
     Route: 048
  241. ALENDRONATE SODIUM [Suspect]
     Active Substance: ALENDRONATE SODIUM
     Indication: Rheumatoid arthritis
     Dosage: UNK, ROUTE OF ADMINISTRATION: UNKNOWN
     Route: 065
  242. ALENDRONATE SODIUM [Suspect]
     Active Substance: ALENDRONATE SODIUM
     Dosage: UNKUNK, PATIENT ROA: INTRACARDIAC
     Route: 016
  243. ALENDRONATE SODIUM [Suspect]
     Active Substance: ALENDRONATE SODIUM
     Dosage: UNKUNK, ROUTE OF ADMINISTRATION: UNKNOWN
     Route: 065
  244. ALENDRONATE SODIUM [Suspect]
     Active Substance: ALENDRONATE SODIUM
     Dosage: UUNK, ROUTE OF ADMINISTRATION: UNKNOWNNK
     Route: 065
  245. HYDROCORTISONE [Suspect]
     Active Substance: HYDROCORTISONE
     Indication: Rheumatoid arthritis
     Dosage: 25 MG, DOSE FORM: UNKNOWN
     Route: 048
  246. HYDROCORTISONE [Suspect]
     Active Substance: HYDROCORTISONE
     Dosage: 25 MG, DOSE FORM: UNKNOWN, ROUTE OF ADMINISTRATION: UNKNOWN
     Route: 065
  247. HYDROCORTISONE [Suspect]
     Active Substance: HYDROCORTISONE
     Dosage: 25 MG, ROUTE OF ADMINISTRATION: UNKNOWN
     Route: 065
  248. HYDROCORTISONE [Suspect]
     Active Substance: HYDROCORTISONE
     Dosage: UNK, DOSE FORM: UNKNOWN
     Route: 048
  249. HYDROCORTISONE [Suspect]
     Active Substance: HYDROCORTISONE
     Dosage: UNK, DOSE FORM: UNKNOWN, ROUTE OF ADMINISTRATION: SUBDERMAL
     Route: 059
  250. HYDROCORTISONE [Suspect]
     Active Substance: HYDROCORTISONE
     Indication: Rheumatoid arthritis
     Dosage: UNK, ROUTE OF ADMINISTRATION: UNKNOWN
     Route: 065
  251. LANSOPRAZOLE [Suspect]
     Active Substance: LANSOPRAZOLE
     Indication: Rheumatoid arthritis
     Dosage: UNK, DOSE FORM: CAPSULE, DELAYED RELEASE
     Route: 048
  252. ALBUTEROL [Suspect]
     Active Substance: ALBUTEROL
     Dosage: 20 MG
     Route: 048
  253. ALBUTEROL [Suspect]
     Active Substance: ALBUTEROL
     Dosage: 20 MG, ROUTE OF ADMINISTRATION: UNKNOWN
     Route: 065
  254. ALBUTEROL [Suspect]
     Active Substance: ALBUTEROL
     Dosage: 2000 MG
     Route: 048
  255. ALBUTEROL [Suspect]
     Active Substance: ALBUTEROL
     Dosage: 2000 MG
     Route: 048
  256. ALBUTEROL [Suspect]
     Active Substance: ALBUTEROL
     Dosage: 40 MG, PATIENT ROA: SUBDERMAL
     Route: 059
  257. ALBUTEROL [Suspect]
     Active Substance: ALBUTEROL
     Dosage: UNK
     Route: 048
  258. ALBUTEROL [Suspect]
     Active Substance: ALBUTEROL
     Dosage: UNK, PATIENT ROA: INTRACARDIAC
     Route: 016
  259. ALBUTEROL [Suspect]
     Active Substance: ALBUTEROL
     Indication: Rheumatoid arthritis
     Dosage: UNK, ROUTE OF ADMINISTRATION: UNKNOWN
     Route: 065
  260. ALBUTEROL [Suspect]
     Active Substance: ALBUTEROL
     Dosage: UNK, ROUTE OF ADMINISTRATION: UNKNOWN
     Route: 065
  261. ALBUTEROL [Suspect]
     Active Substance: ALBUTEROL
     Dosage: UNK, ROUTE OF ADMINISTRATION: UNKNOWN
     Route: 065
  262. SIMPONI [Suspect]
     Active Substance: GOLIMUMAB
     Indication: Rheumatoid arthritis
     Dosage: 1 G, DOSE FORM: SOLUTION SUBCUTANEOUS, ROUTE OF ADMINISTRATION: UNKNOWN
     Route: 065
  263. SIMPONI [Suspect]
     Active Substance: GOLIMUMAB
     Dosage: UNK
     Route: 048
  264. SIMPONI [Suspect]
     Active Substance: GOLIMUMAB
     Indication: Rheumatoid arthritis
     Dosage: UNK, ROUTE OF ADMINISTRATION: UNKNOWN
     Route: 065
  265. SIMPONI [Suspect]
     Active Substance: GOLIMUMAB
     Dosage: UNK, ROUTE OF ADMINISTRATION: UNKNOWN
     Route: 065
  266. SULFAMETHOXAZOLE\TRIMETHOPRIM [Suspect]
     Active Substance: SULFAMETHOXAZOLE\TRIMETHOPRIM
     Indication: Rheumatoid arthritis
     Dosage: UNK, ROUTE OF ADMINISTRATION: UNKNOWN
     Route: 065
  267. TUMS [Suspect]
     Active Substance: CALCIUM CARBONATE
     Dosage: UNK
     Route: 042
  268. TUMS [Suspect]
     Active Substance: CALCIUM CARBONATE
     Indication: Rheumatoid arthritis
     Dosage: UNK, REGULAR STRENGTH  (PEPPERMINT)
     Route: 058
  269. TUMS [Suspect]
     Active Substance: CALCIUM CARBONATE
     Dosage: UNK, ROUTE OF ADMINISTRATION: UNKNOWN
     Route: 065
  270. TUMS ULTRA [Suspect]
     Active Substance: CALCIUM CARBONATE
     Indication: Rheumatoid arthritis
     Dosage: UNK, PEPPERMINT
     Route: 042
  271. VOLTAREN [Suspect]
     Active Substance: DICLOFENAC SODIUM
     Indication: Rheumatoid arthritis
     Dosage: 100 MG, QD, DOSE FORM: UNKNOWN,  ROUTE OF ADMINISTRATION: UNKNOWN
     Route: 065
  272. VOLTAREN [Suspect]
     Active Substance: DICLOFENAC SODIUM
     Dosage: 100 MG, DOSE FORM: UNKNOWN, ROUTE OF  ADMINISTRATION: UNKNOWN
     Route: 065
  273. VOLTAREN [Suspect]
     Active Substance: DICLOFENAC SODIUM
     Indication: Osteoarthritis
     Dosage: 50 MG
     Route: 048
  274. VOLTAREN [Suspect]
     Active Substance: DICLOFENAC SODIUM
     Dosage: 50 MG, DOSE FORM: UNKNOWN
     Route: 048
  275. VOLTAREN [Suspect]
     Active Substance: DICLOFENAC SODIUM
     Dosage: 50 MG, DOSE FORM: UNKNOWN, ROUTE OF  ADMINISTRATION: UNKNOWN
     Route: 065
  276. VOLTAREN [Suspect]
     Active Substance: DICLOFENAC SODIUM
     Dosage: 50 MG, DOSE FORM: UNKNOWN, ROUTE OF  ADMINISTRATION: UNKNOWN
     Route: 065
  277. VOLTAREN [Suspect]
     Active Substance: DICLOFENAC SODIUM
     Dosage: 50 MG, DOSE FORM: UNKNOWN, ROUTE OF  ADMINISTRATION: UNKNOWN
     Route: 065
  278. VOLTAREN [Suspect]
     Active Substance: DICLOFENAC SODIUM
     Dosage: 500 MG, DOSE FORM: UNKNOWN, ROUTE OF  ADMINISTRATION: UNKNOWN
     Route: 065
  279. VOLTAREN [Suspect]
     Active Substance: DICLOFENAC SODIUM
     Dosage: 500 MG, DOSE FORM: UNKNOWN, ROUTE OF  ADMINISTRATION: UNKNOWN
     Route: 065
  280. VOLTAREN [Suspect]
     Active Substance: DICLOFENAC SODIUM
     Dosage: UNK UNK, DOSE FORM: UNKNOWN, ROUTE OF  ADMINISTRATION: UNKNOW
     Route: 065
  281. VOLTAREN [Suspect]
     Active Substance: DICLOFENAC SODIUM
     Dosage: UNK UNK, DOSE FORM: UNKNOWN, ROUTE OF  ADMINISTRATION: UNKNOWN
     Route: 065
  282. VOLTAREN [Suspect]
     Active Substance: DICLOFENAC SODIUM
     Dosage: UNK UNK, DOSE FORM: UNKNOWN, ROUTE OF  ADMINISTRATION: UNKNOWN
     Route: 065
  283. VOLTAREN [Suspect]
     Active Substance: DICLOFENAC SODIUM
     Dosage: UNK, DOSE FORM: UNKNOWN
     Route: 048
  284. VOLTAREN [Suspect]
     Active Substance: DICLOFENAC SODIUM
     Indication: Inflammation
     Dosage: UNK, DOSE FORM: UNKNOWN, ROUTE OF  ADMINISTRATION: SUBCUTANEOUS
     Route: 065
  285. VOLTAREN [Suspect]
     Active Substance: DICLOFENAC SODIUM
     Dosage: UNK, DOSE FORM: UNKNOWN, ROUTE OF  ADMINISTRATION: UNKNOWN
     Route: 065
  286. VOLTAREN [Suspect]
     Active Substance: DICLOFENAC SODIUM
     Dosage: UNK, DOSE FORM: UNKNOWN, ROUTE OF  ADMINISTRATION: UNKNOWN
     Route: 065
  287. VOLTAREN [Suspect]
     Active Substance: DICLOFENAC SODIUM
     Dosage: UNK, DOSE FORM: UNKNOWN, ROUTE OF  ADMINISTRATION: UNKNOWN
     Route: 065
  288. VOLTAREN [Suspect]
     Active Substance: DICLOFENAC SODIUM
     Dosage: UNK, DOSE FORM: UNKNOWN, ROUTE OF  ADMINISTRATION: SUBDERMAL
     Route: 065
  289. HYALURONIDASE (HUMAN RECOMBINANT) [Suspect]
     Active Substance: HYALURONIDASE (HUMAN RECOMBINANT)
     Indication: Rheumatoid arthritis
     Dosage: UNK
     Route: 058
  290. PREDNISONE [Suspect]
     Active Substance: PREDNISONE
     Dosage: 1 DOSAGE FORM, QD
     Route: 048
  291. PREDNISONE [Suspect]
     Active Substance: PREDNISONE
     Dosage: 1 DOSAGE FORM, QD
     Route: 048
  292. PREDNISONE [Suspect]
     Active Substance: PREDNISONE
     Dosage: 2 DOSAGE FORM
     Route: 048
  293. PREDNISONE [Suspect]
     Active Substance: PREDNISONE
     Indication: Rheumatoid arthritis
     Dosage: 20 MG, ROUTE OF ADMINISTRATION: UNKNOWN
     Route: 065
  294. PREDNISONE [Suspect]
     Active Substance: PREDNISONE
     Dosage: 200 MG
     Route: 048
  295. PREDNISONE [Suspect]
     Active Substance: PREDNISONE
     Indication: Arthritis
     Dosage: 7.5 MG
     Route: 048
  296. PREDNISONE [Suspect]
     Active Substance: PREDNISONE
     Dosage: UNK
     Route: 065
  297. PREDNISONE [Suspect]
     Active Substance: PREDNISONE
     Dosage: UNK, ROUTE OF ADMINISTRATION: UNKNOWN
     Route: 065
  298. ZESTRIL [Suspect]
     Active Substance: LISINOPRIL
     Indication: Product used for unknown indication
     Dosage: UNK, ROUTE OF ADMINISTRATION: UNKNOWN
     Route: 065
  299. LANSOPRAZOLE [Concomitant]
     Active Substance: LANSOPRAZOLE
     Indication: Rheumatoid arthritis
     Dosage: UNK, DOSE FORM: CAPSULE, DELAYED RELEASE
     Route: 048
  300. LORAZEPAM [Concomitant]
     Active Substance: LORAZEPAM
     Indication: Product used for unknown indication
     Dosage: 1 MG, ROUTE OF ADMINISTRATION: UNKNOWN
     Route: 065

REACTIONS (23)
  - Lupus-like syndrome [Fatal]
  - Insomnia [Fatal]
  - Memory impairment [Fatal]
  - Muscular weakness [Fatal]
  - Oedema peripheral [Fatal]
  - Pain in extremity [Fatal]
  - Respiratory disorder [Fatal]
  - Road traffic accident [Fatal]
  - Sleep disorder due to a general medical condition [Fatal]
  - Swelling [Fatal]
  - Lower limb fracture [Fatal]
  - Lower respiratory tract infection [Fatal]
  - Pancreatitis [Fatal]
  - Porphyria acute [Fatal]
  - Pulmonary fibrosis [Fatal]
  - Sleep disorder due to general medical condition, insomnia type [Fatal]
  - Swollen joint count increased [Fatal]
  - Vomiting [Fatal]
  - Weight decreased [Fatal]
  - Weight increased [Fatal]
  - White blood cell count increased [Fatal]
  - Wound [Fatal]
  - Incorrect route of product administration [Fatal]
